FAERS Safety Report 22120191 (Version 1)
Quarter: 2023Q1

REPORT INFORMATION
  Report Type: Spontaneous
  Country: CA (occurrence: CA)
  Receive Date: 20230321
  Receipt Date: 20230321
  Transmission Date: 20230418
  Serious: Yes (Other)
  Sender: FDA-Public Use
  Company Number: CA-002147023-NVSC2023CA059837

PATIENT
  Age: 15 Year
  Sex: Male

DRUGS (3)
  1. TACROLIMUS [Suspect]
     Active Substance: TACROLIMUS
     Indication: Renal transplant
     Dosage: 1 MG (1 EVERY 5 DAYS)
     Route: 048
  2. ECULIZUMAB [Concomitant]
     Active Substance: ECULIZUMAB
     Indication: Atypical haemolytic uraemic syndrome
     Dosage: 1 EVERY 2 WEEKS
     Route: 065
  3. PREDNISONE [Concomitant]
     Active Substance: PREDNISONE
     Indication: Renal transplant
     Dosage: 5 MG (1 EVERY 2 DAYS)
     Route: 065

REACTIONS (3)
  - Condition aggravated [Unknown]
  - Epstein-Barr viraemia [Unknown]
  - Polyomavirus viraemia [Unknown]
